FAERS Safety Report 20644917 (Version 2)
Quarter: 2024Q1

REPORT INFORMATION
  Report Type: Spontaneous
  Country: US (occurrence: US)
  Receive Date: 20220328
  Receipt Date: 20240102
  Transmission Date: 20240410
  Serious: Yes (Death, Other)
  Sender: FDA-Public Use
  Company Number: US-PFIZER INC-202200455822

PATIENT
  Age: 85 Year
  Sex: Female

DRUGS (1)
  1. VYNDAMAX [Suspect]
     Active Substance: TAFAMIDIS
     Dosage: 61 MG

REACTIONS (10)
  - Sepsis [Fatal]
  - Oedema peripheral [Unknown]
  - Fatigue [Unknown]
  - Dyspnoea exertional [Unknown]
  - Peripheral swelling [Unknown]
  - Myalgia [Unknown]
  - Pain [Unknown]
  - Dyspnoea [Unknown]
  - Cognitive disorder [Unknown]
  - Treatment noncompliance [Unknown]
